FAERS Safety Report 17615852 (Version 1)
Quarter: 2020Q2

REPORT INFORMATION
  Report Type: Spontaneous
  Country: US (occurrence: US)
  Receive Date: 20200401
  Receipt Date: 20200401
  Transmission Date: 20200713
  Serious: Yes (Disabling)
  Sender: FDA-Public Use
  Company Number: None

PATIENT
  Age: 32 Year
  Sex: Female
  Weight: 48.6 kg

DRUGS (6)
  1. WEED [Concomitant]
     Active Substance: CANNABIS SATIVA SUBSP. INDICA TOP
  2. CBD [Concomitant]
     Active Substance: CANNABIDIOL
  3. MAPAP/ACETAMINOPHEN [Concomitant]
  4. ONDANSETRON [Concomitant]
     Active Substance: ONDANSETRON
  5. GABAPENTIN 600MG TAB NORT [Suspect]
     Active Substance: GABAPENTIN
     Indication: SCIATICA
     Dosage: ?          QUANTITY:1 TABLET(S);?
     Route: 048
     Dates: start: 20161226, end: 20200401
  6. TIZANADINE [Concomitant]
     Active Substance: TIZANIDINE

REACTIONS (2)
  - Seizure [None]
  - Withdrawal syndrome [None]

NARRATIVE: CASE EVENT DATE: 20170714
